FAERS Safety Report 8461245-7 (Version None)
Quarter: 2012Q2

REPORT INFORMATION
  Report Type: 
  Country: None (occurrence: None)
  Receive Date: 20120323
  Receipt Date: 20111019
  Transmission Date: 20120825
  Serious: Yes (Hospitalization)
  Sender: FDA-Public Use
  Company Number: 163-21880-11102344

PATIENT
  Age: 75 Year
  Sex: Female
  Weight: 72.5755 kg

DRUGS (11)
  1. ASPIRIN [Concomitant]
  2. ALBUTEROL [Concomitant]
  3. LEVOTHYROXINE SODIUM [Concomitant]
  4. REVLIMID [Suspect]
     Indication: MULTIPLE MYELOMA
     Dosage: 25 MG, 1 IN 1 D, PO
     Route: 048
     Dates: start: 20110309
  5. SEREVENT [Concomitant]
  6. GABAPENTIN [Concomitant]
  7. ACYCLOVIR [Concomitant]
  8. ONDANSETRON [Concomitant]
  9. POTASSIUM CHLORIDE [Concomitant]
  10. OMEPRAZOLE [Concomitant]
  11. SPIRIVA [Concomitant]

REACTIONS (3)
  - FATIGUE [None]
  - FALL [None]
  - BLOOD POTASSIUM DECREASED [None]
